FAERS Safety Report 21420559 (Version 2)
Quarter: 2022Q4

REPORT INFORMATION
  Report Type: Report from Study
  Country: FR (occurrence: FR)
  Receive Date: 20221007
  Receipt Date: 20221028
  Transmission Date: 20230113
  Serious: Yes (Hospitalization)
  Sender: FDA-Public Use
  Company Number: FR-JNJFOC-20220958789

PATIENT
  Age: 74 Year
  Sex: Male
  Weight: 50 kg

DRUGS (7)
  1. SPRAVATO [Suspect]
     Active Substance: ESKETAMINE
     Indication: Depression
     Dates: start: 20220406, end: 20220406
  2. SPRAVATO [Suspect]
     Active Substance: ESKETAMINE
     Dosage: 3 DOSES
     Dates: start: 20220408, end: 20220414
  3. SPRAVATO [Suspect]
     Active Substance: ESKETAMINE
     Dosage: 1 WEEK OUT OF 2 (EVERY OTHER WEEK)
     Dates: start: 20220429, end: 20220429
  4. SPRAVATO [Suspect]
     Active Substance: ESKETAMINE
     Dosage: 2 DOSES
     Dates: start: 20220504, end: 20220506
  5. SPRAVATO [Suspect]
     Active Substance: ESKETAMINE
     Dosage: 2 DOSES
     Dates: start: 20220512, end: 20220518
  6. SPRAVATO [Suspect]
     Active Substance: ESKETAMINE
     Dates: start: 20220520, end: 20220520
  7. SPRAVATO [Suspect]
     Active Substance: ESKETAMINE
     Dates: start: 20220527, end: 20220527

REACTIONS (2)
  - Illness [Recovered/Resolved]
  - Off label use [Unknown]

NARRATIVE: CASE EVENT DATE: 20220429
